FAERS Safety Report 12976037 (Version 3)
Quarter: 2017Q3

REPORT INFORMATION
  Report Type: Spontaneous
  Country: US (occurrence: US)
  Receive Date: 20161126
  Receipt Date: 20170922
  Transmission Date: 20171127
  Serious: Yes (Hospitalization)
  Sender: FDA-Public Use
  Company Number: US-ASTRAZENECA-2016SF23536

PATIENT
  Age: 63 Year
  Sex: Female
  Weight: 62.1 kg

DRUGS (4)
  1. SPIRIVA RESPIVANT [Concomitant]
     Dosage: TWO INHALATIONS DAILY
     Route: 055
     Dates: start: 2016
  2. COMBIVENT  RESPIVANT [Concomitant]
     Indication: PROPHYLAXIS
     Dosage: TAKES FOUR INHALATIONS DAILY AS NEEDED
     Route: 055
  3. LISINOPRIL. [Concomitant]
     Active Substance: LISINOPRIL
     Indication: HYPERTENSION
  4. SYMBICORT [Suspect]
     Active Substance: BUDESONIDE\FORMOTEROL FUMARATE DIHYDRATE
     Indication: CHRONIC OBSTRUCTIVE PULMONARY DISEASE
     Dosage: 160/4.5 MCG 120 INHALATIONS, TWO INHALATIONS, TWO TIMES A DAY
     Route: 055

REACTIONS (7)
  - Drug dose omission [Unknown]
  - Hypertension [Unknown]
  - Device malfunction [Unknown]
  - Pneumonia [Unknown]
  - Injury [Unknown]
  - Asthenia [Unknown]
  - Intentional product misuse [Unknown]

NARRATIVE: CASE EVENT DATE: 2011
